FAERS Safety Report 6635622-0 (Version None)
Quarter: 2010Q1

REPORT INFORMATION
  Report Type: 
  Country: None (occurrence: None)
  Receive Date: 20100315
  Receipt Date: 20100305
  Transmission Date: 20100710
  Serious: Yes (Hospitalization, Other)
  Sender: FDA-Public Use
  Company Number: CA-ABBOTT-10P-028-0630519-00

PATIENT
  Sex: Female

DRUGS (5)
  1. HUMIRA [Suspect]
     Indication: RHEUMATOID ARTHRITIS
     Route: 058
     Dates: start: 20080326
  2. HUMIRA [Suspect]
     Route: 058
     Dates: start: 20100225
  3. CORTISONE [Concomitant]
     Indication: RASH
     Route: 061
  4. TYLENOL (CAPLET) [Concomitant]
     Indication: DRUG USE FOR UNKNOWN INDICATION
     Route: 048
  5. ATASOL [Concomitant]
     Indication: DRUG USE FOR UNKNOWN INDICATION
     Route: 048

REACTIONS (6)
  - FALL [None]
  - FEMUR FRACTURE [None]
  - KNEE ARTHROPLASTY [None]
  - MUSCLE ATROPHY [None]
  - PROSTHESIS IMPLANTATION [None]
  - RHEUMATOID ARTHRITIS [None]
